FAERS Safety Report 4990635-X (Version None)
Quarter: 2006Q2

REPORT INFORMATION
  Report Type: 
  Country: None (occurrence: None)
  Receive Date: 20060427
  Receipt Date: 20060417
  Transmission Date: 20061013
  Serious: Yes (Hospitalization)
  Sender: FDA-Public Use
  Company Number: 145379USA

PATIENT
  Age: 68 Year
  Sex: Female
  Weight: 74.8435 kg

DRUGS (2)
  1. LISINOPRIL [Suspect]
     Indication: HYPERTENSION
     Dosage: 20 MILLIGRAM QD ORAL
     Route: 048
     Dates: start: 20060227, end: 20060228
  2. NEXIUM [Concomitant]

REACTIONS (1)
  - COLITIS ULCERATIVE [None]
